FAERS Safety Report 7938332-2 (Version None)
Quarter: 2011Q4

REPORT INFORMATION
  Report Type: 
  Country: None (occurrence: None)
  Receive Date: 20111123
  Receipt Date: 20111121
  Transmission Date: 20120403
  Serious: Yes (Other)
  Sender: FDA-Public Use
  Company Number: US-PFIZER INC-2011276920

PATIENT
  Sex: Female
  Weight: 98.866 kg

DRUGS (6)
  1. SYNTHROID [Concomitant]
     Indication: THYROID DISORDER
     Dosage: 100 UG, DAILY
  2. LISINOPRIL AND HYDROCHLOROTHIAZIDE [Concomitant]
     Indication: HYPERTENSION
     Dosage: ^20 MG^ TWO TIMES A DAY
  3. NIASPAN [Concomitant]
     Indication: BLOOD CHOLESTEROL INCREASED
     Dosage: 1000 MG, UNK
  4. SIMVASTATIN [Concomitant]
     Indication: HYPERTENSION
     Dosage: 20 MG, DAILY
  5. CHANTIX [Suspect]
     Indication: SMOKING CESSATION THERAPY
     Dosage: 0.5 MG, DAILY
     Dates: start: 20110922, end: 20111103
  6. VIVELLE-DOT [Concomitant]
     Indication: HORMONE REPLACEMENT THERAPY
     Dosage: 0.037 MG, UNK

REACTIONS (11)
  - ANXIETY [None]
  - DEPRESSED MOOD [None]
  - PANIC ATTACK [None]
  - ANGER [None]
  - DECREASED APPETITE [None]
  - PARANOIA [None]
  - HEADACHE [None]
  - BLOOD PRESSURE INADEQUATELY CONTROLLED [None]
  - WEIGHT DECREASED [None]
  - EMOTIONAL DISORDER [None]
  - CONFUSIONAL STATE [None]
